FAERS Safety Report 21778457 (Version 1)
Quarter: 2022Q4

REPORT INFORMATION
  Report Type: Report from Study
  Country: US (occurrence: US)
  Receive Date: 20221226
  Receipt Date: 20221226
  Transmission Date: 20230113
  Serious: No
  Sender: FDA-Public Use
  Company Number: US-ABBVIE-4207529

PATIENT
  Age: 40 Year
  Sex: Male

DRUGS (2)
  1. HUMIRA [Suspect]
     Active Substance: ADALIMUMAB
     Indication: Crohn^s disease
     Route: 058
     Dates: start: 202109
  2. HUMIRA [Suspect]
     Active Substance: ADALIMUMAB

REACTIONS (2)
  - Off label use [Unknown]
  - Arthralgia [Unknown]

NARRATIVE: CASE EVENT DATE: 20221001
